FAERS Safety Report 11118238 (Version 2)
Quarter: 2015Q3

REPORT INFORMATION
  Report Type: Spontaneous
  Country: TH (occurrence: TH)
  Receive Date: 20150518
  Receipt Date: 20150708
  Transmission Date: 20151125
  Serious: Yes (Death, Other)
  Sender: FDA-Public Use
  Company Number: TH-JNJFOC-20150503527

PATIENT
  Age: 55 Year
  Sex: Female

DRUGS (5)
  1. VINCRISTINE [Suspect]
     Active Substance: VINCRISTINE
     Indication: DIFFUSE LARGE B-CELL LYMPHOMA
     Dosage: 2000 MCG PER DAY FOR 5 DAYS IN FIRST CYCLE OF CHOP.
     Route: 042
  2. ADRIM [Suspect]
     Active Substance: DOXORUBICIN HYDROCHLORIDE
     Indication: DIFFUSE LARGE B-CELL LYMPHOMA
     Dosage: 70 MG PER DAY FOR 5 DAYS IN FIST CYCLE OF CHOP.
     Route: 042
  3. PREDNISONE. [Suspect]
     Active Substance: PREDNISONE
     Indication: DIFFUSE LARGE B-CELL LYMPHOMA
     Dosage: 90 MG PER DAY FOR 5 DAYS IN FIRST CYCLE OF CHOP.
     Route: 048
  4. CYCLOPHOSPHAMIDE. [Suspect]
     Active Substance: CYCLOPHOSPHAMIDE
     Indication: DIFFUSE LARGE B-CELL LYMPHOMA
     Dosage: 100MG PER DAY FOR 5 DAYS IN FIRST CYCLE OF CHOP.
     Route: 042
  5. DOXORUBICIN [Suspect]
     Active Substance: DOXORUBICIN
     Indication: DIFFUSE LARGE B-CELL LYMPHOMA
     Dosage: 70 MG PER DAY FOR 5 DAYS IN FIST CYCLE OF CHOP.
     Route: 042

REACTIONS (7)
  - Infection [Fatal]
  - Neutropenia [Unknown]
  - Systemic candida [Recovered/Resolved]
  - Pyrexia [Recovered/Resolved]
  - Diarrhoea [Recovered/Resolved]
  - Asymptomatic bacteriuria [Unknown]
  - Enterocolitis fungal [Recovered/Resolved]
